FAERS Safety Report 5014744-4 (Version None)
Quarter: 2006Q2

REPORT INFORMATION
  Report Type: 
  Country: None (occurrence: None)
  Receive Date: 20060531
  Receipt Date: 20060524
  Transmission Date: 20061013
  Serious: Yes (Death)
  Sender: FDA-Public Use
  Company Number: IT-GLAXOSMITHKLINE-B0425715A

PATIENT
  Age: 60 Year
  Sex: Male

DRUGS (1)
  1. RANITIDINE [Suspect]
     Route: 042
     Dates: start: 20060523, end: 20060523

REACTIONS (1)
  - ANAPHYLACTIC SHOCK [None]
